FAERS Safety Report 6942637-1 (Version None)
Quarter: 2010Q3

REPORT INFORMATION
  Report Type: 
  Country: None (occurrence: None)
  Receive Date: 20100825
  Receipt Date: 20100813
  Transmission Date: 20110219
  Serious: No
  Sender: FDA-Public Use
  Company Number: CC-10-003

PATIENT
  Age: 12 Month
  Sex: Female
  Weight: 11.3399 kg

DRUGS (1)
  1. CONCENTRATED MOTRIN INFANTS DROPS [Suspect]
     Indication: TEETHING
     Dosage: QID TO BID - ORAL (PO)
     Route: 048
     Dates: start: 20100801, end: 20100811

REACTIONS (1)
  - STEVENS-JOHNSON SYNDROME [None]
